FAERS Safety Report 8026093-0 (Version None)
Quarter: 2012Q1

REPORT INFORMATION
  Report Type: 
  Country: None (occurrence: None)
  Receive Date: 20120105
  Receipt Date: 20110609
  Transmission Date: 20120608
  Serious: No
  Sender: FDA-Public Use
  Company Number: US-ABBOTT-11P-163-0731672-00

PATIENT
  Sex: Female

DRUGS (2)
  1. SYNTHROID [Suspect]
     Indication: THYROIDECTOMY
     Dates: start: 20100801, end: 20110507
  2. SYNTHROID [Suspect]
     Indication: THYROID NEOPLASM
     Dates: start: 20080101, end: 20100801

REACTIONS (4)
  - PULSE PRESSURE INCREASED [None]
  - BLOOD THYROID STIMULATING HORMONE DECREASED [None]
  - BLOOD PRESSURE INCREASED [None]
  - PALPITATIONS [None]
